FAERS Safety Report 18711857 (Version 1)
Quarter: 2021Q1

REPORT INFORMATION
  Report Type: Report from Study
  Country: US (occurrence: US)
  Receive Date: 20210107
  Receipt Date: 20210107
  Transmission Date: 20210419
  Serious: Yes (Other)
  Sender: FDA-Public Use
  Company Number: US-GILEAD-2020-0504269

PATIENT
  Age: 62 Year
  Sex: Male

DRUGS (4)
  1. LEVEMIR [Concomitant]
     Active Substance: INSULIN DETEMIR
     Dosage: 30 UNITS A DAY
  2. INSULIN [Concomitant]
     Active Substance: INSULIN NOS
  3. SOFOSBUVIR W/VELPATASVIR [Suspect]
     Active Substance: SOFOSBUVIR\VELPATASVIR
     Indication: HEPATITIS C
     Dosage: 1 DOSAGE FORM, QD
     Route: 048
     Dates: start: 20200915, end: 20201228
  4. HUMULIN 70/30 [Concomitant]
     Active Substance: INSULIN HUMAN
     Dosage: 15 UNITS IN THE AM AND 15 UNITS IN THE PM

REACTIONS (10)
  - Decreased appetite [Unknown]
  - Fatigue [Unknown]
  - Asthenia [Unknown]
  - Loss of consciousness [Unknown]
  - Vertigo [Unknown]
  - Muscle spasms [Not Recovered/Not Resolved]
  - Fatigue [Recovered/Resolved]
  - Liver disorder [Unknown]
  - Confusional state [Unknown]
  - Weight fluctuation [Not Recovered/Not Resolved]

NARRATIVE: CASE EVENT DATE: 20200920
